FAERS Safety Report 18808599 (Version 1)
Quarter: 2021Q1

REPORT INFORMATION
  Report Type: Spontaneous
  Country: FR (occurrence: FR)
  Receive Date: 20210129
  Receipt Date: 20210129
  Transmission Date: 20210419
  Serious: Yes (Hospitalization, Other)
  Sender: FDA-Public Use
  Company Number: FR-JNJFOC-20190300669

PATIENT
  Age: 66 Year
  Sex: Male

DRUGS (14)
  1. HALDOL [Suspect]
     Active Substance: HALOPERIDOL
     Indication: IRRITABLE BOWEL SYNDROME
     Route: 048
  2. DEBRIDAT                           /00465201/ [Concomitant]
     Active Substance: TRIMEBUTINE MALEATE
     Indication: PRODUCT USED FOR UNKNOWN INDICATION
     Route: 048
  3. PARACETAMOL [Concomitant]
     Active Substance: ACETAMINOPHEN
     Indication: ANALGESIC THERAPY
     Dosage: 1 TABLET TO BE RENEWED IF NECESSARY AFTER 4 HRS MAXIMUM
     Route: 048
  4. CETIRIZINE                         /00884302/ [Concomitant]
     Active Substance: CETIRIZINE HYDROCHLORIDE
     Indication: HYPERSENSITIVITY
     Route: 048
  5. HALDOL [Suspect]
     Active Substance: HALOPERIDOL
     Indication: PAIN IN EXTREMITY
     Route: 048
  6. ZOMIGORO [Concomitant]
     Active Substance: ZOLMITRIPTAN
     Indication: MIGRAINE
     Dosage: TO BE MELT IN MOUTH, 1 TABLET AT THE TIME OF MIGRAINE ATTACK
     Route: 048
  7. TEMESTA                            /00273201/ [Concomitant]
     Active Substance: LORAZEPAM
     Indication: PRODUCT USED FOR UNKNOWN INDICATION
     Dosage: 2 TO 4 TABLETS PER DAY FOR 1 TO 12 WEEKS
     Route: 048
  8. FLUCONAZOLE. [Concomitant]
     Active Substance: FLUCONAZOLE
     Indication: PRODUCT USED FOR UNKNOWN INDICATION
     Route: 065
  9. HALDOL [Suspect]
     Active Substance: HALOPERIDOL
     Indication: SCHIZOPHRENIA
     Route: 048
  10. OMEPRAZOLE. [Concomitant]
     Active Substance: OMEPRAZOLE
     Indication: PRODUCT USED FOR UNKNOWN INDICATION
     Route: 065
  11. DEBRIDAT                           /00465201/ [Concomitant]
     Active Substance: TRIMEBUTINE MALEATE
     Route: 048
  12. HALDOL [Suspect]
     Active Substance: HALOPERIDOL
     Indication: ARTHRALGIA
     Route: 048
  13. SPAGULAX [Concomitant]
     Active Substance: PLANTAGO OVATA SEED
     Indication: PRODUCT USED FOR UNKNOWN INDICATION
     Dosage: 1 SACHET MORNING, NOON AND EVENING BEFORE OR AFTER MEAL
     Route: 065
  14. TRAMADOL. [Concomitant]
     Active Substance: TRAMADOL
     Indication: MYALGIA
     Dosage: 1 TABLET IN MORNING AND EVENING
     Route: 065

REACTIONS (18)
  - Pruritus [Not Recovered/Not Resolved]
  - Erectile dysfunction [Not Recovered/Not Resolved]
  - Myalgia [Unknown]
  - Neuritis [Unknown]
  - Incorrect dose administered [Unknown]
  - Abdominal pain [Unknown]
  - Burning mouth syndrome [Not Recovered/Not Resolved]
  - Haematospermia [Not Recovered/Not Resolved]
  - Memory impairment [Unknown]
  - Fatigue [Unknown]
  - Sepsis [Unknown]
  - Prostatic specific antigen increased [Not Recovered/Not Resolved]
  - Sexual dysfunction [Unknown]
  - Feeling abnormal [Unknown]
  - Stomatitis [Unknown]
  - Anxiety [Unknown]
  - Off label use [Unknown]
  - Trismus [Not Recovered/Not Resolved]

NARRATIVE: CASE EVENT DATE: 2012
